FAERS Safety Report 23146778 (Version 1)
Quarter: 2023Q4

REPORT INFORMATION
  Report Type: Spontaneous
  Country: US (occurrence: US)
  Receive Date: 20231105
  Receipt Date: 20231105
  Transmission Date: 20240110
  Serious: No
  Sender: FDA-Public Use
  Company Number: US-009507513-2310USA007863

PATIENT
  Age: 53 Year
  Sex: Male

DRUGS (2)
  1. NOXAFIL [Suspect]
     Active Substance: POSACONAZOLE
     Indication: Coccidioidomycosis
     Dosage: UNK
     Route: 048
  2. RIFABUTIN [Concomitant]
     Active Substance: RIFABUTIN
     Indication: Antifungal treatment

REACTIONS (1)
  - Product use in unapproved indication [Unknown]
